FAERS Safety Report 15186761 (Version 1)
Quarter: 2018Q3

REPORT INFORMATION
  Report Type: Report from Study
  Country: US (occurrence: US)
  Receive Date: 20180723
  Receipt Date: 20180723
  Transmission Date: 20181010
  Serious: Yes (Death)
  Sender: FDA-Public Use
  Company Number: US-EXELIXIS-CABO-17011706

PATIENT
  Age: 68 Year
  Sex: Male

DRUGS (10)
  1. ALBUTEROL. [Concomitant]
     Active Substance: ALBUTEROL
  2. LEVAQUIN [Concomitant]
     Active Substance: LEVOFLOXACIN
  3. MS CONTIN [Concomitant]
     Active Substance: MORPHINE SULFATE
  4. SYMBICORT [Concomitant]
     Active Substance: BUDESONIDE\FORMOTEROL FUMARATE DIHYDRATE
  5. TESSALON [Concomitant]
     Active Substance: BENZONATATE
  6. ACETAMINOPHEN. [Concomitant]
     Active Substance: ACETAMINOPHEN
  7. CABOMETYX [Suspect]
     Active Substance: CABOZANTINIB S-MALATE
     Indication: RENAL CANCER
     Dosage: 20 MG, ONE TIME DAILY FOR 7 DAYS, THEN 2 TABLETS DAILY FOR 7 DAYS, FOLLOWED BY 3 TABLETS DAILY
     Route: 048
     Dates: start: 20170809
  8. BUDESONIDE. [Concomitant]
     Active Substance: BUDESONIDE
  9. PROTONIX [Concomitant]
     Active Substance: PANTOPRAZOLE SODIUM
  10. ZOFRAN [Concomitant]
     Active Substance: ONDANSETRON HYDROCHLORIDE

REACTIONS (1)
  - Malignant neoplasm progression [Fatal]

NARRATIVE: CASE EVENT DATE: 20171205
